FAERS Safety Report 23216849 (Version 1)
Quarter: 2023Q4

REPORT INFORMATION
  Report Type: Spontaneous
  Country: US (occurrence: US)
  Receive Date: 20231122
  Receipt Date: 20231122
  Transmission Date: 20240110
  Serious: No
  Sender: FDA-Public Use
  Company Number: US-CIPLA LTD.-2023US00795

PATIENT

DRUGS (7)
  1. GABAPENTIN [Suspect]
     Active Substance: GABAPENTIN
     Indication: Nerve compression
     Dosage: 1 DOSAGE FORM, QD (AT NIGHT)
     Route: 048
     Dates: start: 20230104, end: 20230120
  2. GABAPENTIN [Suspect]
     Active Substance: GABAPENTIN
     Indication: Spinal pain
  3. CELEBREX [Concomitant]
     Active Substance: CELECOXIB
     Indication: Arthritis
     Dosage: 200 MILLIGRAM, QD (2 YEARS)
     Route: 065
  4. RAMIPRIL [Concomitant]
     Active Substance: RAMIPRIL
     Indication: Blood pressure abnormal
     Dosage: 10 MILLIGRAM, QD STARTED 10 YEARS AGO
     Route: 065
  5. PRESTOLE [Concomitant]
     Indication: Blood cholesterol abnormal
     Dosage: 100 MILLIGRAM, QD
     Route: 065
  6. ASPIRIN [Concomitant]
     Active Substance: ASPIRIN
     Indication: Cardiac disorder
     Dosage: 81 MILLIGRAM, QD
     Route: 065
  7. ESTRACE [Concomitant]
     Active Substance: ESTRADIOL
     Indication: Vulvovaginal dryness
     Dosage: UNK
     Route: 065

REACTIONS (7)
  - Wheezing [Recovered/Resolved]
  - Sinonasal obstruction [Recovered/Resolved]
  - Blood pressure increased [Not Recovered/Not Resolved]
  - Off label use [Unknown]
  - Drug ineffective for unapproved indication [Unknown]
  - Dyspnoea [Recovered/Resolved]
  - Cough [Recovered/Resolved]

NARRATIVE: CASE EVENT DATE: 20230104
